FAERS Safety Report 5153436-8 (Version None)
Quarter: 2006Q4

REPORT INFORMATION
  Report Type: 
  Country: None (occurrence: None)
  Receive Date: 20061117
  Receipt Date: 20061110
  Transmission Date: 20070319
  Serious: Yes (Life-Threatening, Hospitalization)
  Sender: FDA-Public Use
  Company Number: MX-MERCK-0611MEX00033

PATIENT
  Age: 41 Year
  Sex: Male
  Weight: 63 kg

DRUGS (5)
  1. ZETIA [Suspect]
     Route: 048
     Dates: start: 20060824, end: 20060827
  2. FENOFIBRATE [Concomitant]
     Route: 048
     Dates: start: 20060824, end: 20060827
  3. ALLOPURINOL SODIUM [Concomitant]
     Indication: HYPERURICAEMIA
     Route: 048
     Dates: start: 20060427
  4. BEZAFIBRATE [Concomitant]
     Route: 048
     Dates: start: 20060427, end: 20060824
  5. VALSARTAN [Concomitant]
     Indication: HYPERTENSION
     Route: 048
     Dates: start: 20060427

REACTIONS (4)
  - ANGINA PECTORIS [None]
  - ASTHENIA [None]
  - INSOMNIA [None]
  - MYALGIA [None]
